FAERS Safety Report 14492059 (Version 2)
Quarter: 2018Q1

REPORT INFORMATION
  Report Type: Spontaneous
  Country: US (occurrence: US)
  Receive Date: 20180206
  Receipt Date: 20180216
  Transmission Date: 20180509
  Serious: Yes (Hospitalization, Other)
  Sender: FDA-Public Use
  Company Number: US-JAZZ-2018-US-002320

PATIENT
  Age: 59 Year
  Sex: Male

DRUGS (2)
  1. MODAFINIL. [Suspect]
     Active Substance: MODAFINIL
     Indication: PRODUCT USED FOR UNKNOWN INDICATION
  2. XYREM [Suspect]
     Active Substance: SODIUM OXYBATE
     Indication: PRODUCT USED FOR UNKNOWN INDICATION
     Route: 048

REACTIONS (15)
  - Atrial fibrillation [Recovered/Resolved]
  - Seizure [Recovered/Resolved]
  - Psychogenic seizure [Unknown]
  - Narcolepsy [Unknown]
  - Tachycardia [Recovered/Resolved]
  - Aspartate aminotransferase abnormal [Recovered/Resolved]
  - Delusion [Recovered/Resolved]
  - Hypertension [Recovered/Resolved]
  - Hallucination [Recovered/Resolved]
  - Psychotic disorder [Unknown]
  - Electrolyte imbalance [Recovered/Resolved]
  - Agitation [Recovering/Resolving]
  - Confusional state [Unknown]
  - Alanine aminotransferase abnormal [Recovered/Resolved]
  - Sleep apnoea syndrome [Unknown]
